FAERS Safety Report 5586482-0 (Version None)
Quarter: 2007Q4

REPORT INFORMATION
  Report Type: 
  Country: None (occurrence: None)
  Receive Date: 20071205
  Receipt Date: 20070604
  Transmission Date: 20080405
  Serious: Yes (Other)
  Sender: FDA-Public Use
  Company Number: HQWYE562211JUN07

PATIENT
  Age: 44 Year
  Sex: Male
  Weight: 104.42 kg

DRUGS (1)
  1. EFFEXOR XR [Suspect]
     Indication: ANXIETY

REACTIONS (3)
  - DRUG WITHDRAWAL SYNDROME [None]
  - FEELING ABNORMAL [None]
  - INSOMNIA [None]
